FAERS Safety Report 9798438 (Version 2)
Quarter: 2014Q1

REPORT INFORMATION
  Report Type: Spontaneous
  Country: US (occurrence: US)
  Receive Date: 20140106
  Receipt Date: 20140321
  Transmission Date: 20141002
  Serious: Yes (Congenital Anomaly, Other)
  Sender: FDA-Public Use
  Company Number: US-PFIZER INC-2014000845

PATIENT
  Sex: Female

DRUGS (10)
  1. ZOLOFT [Suspect]
     Indication: ANXIETY
     Dosage: UNK
     Route: 064
     Dates: start: 2002, end: 2006
  2. ZOLOFT [Suspect]
     Indication: DEPRESSION
  3. ZOLOFT [Suspect]
     Indication: AFFECTIVE DISORDER
  4. PRENATAL VITAMINS [Concomitant]
     Dosage: UNK
     Route: 064
  5. PAXIL [Concomitant]
     Dosage: UNK
     Route: 064
  6. ADDERALL XR [Concomitant]
     Dosage: UNK
     Route: 064
  7. ALBUTEROL [Concomitant]
     Dosage: UNK
     Route: 064
  8. ZITHROMAX Z-PACK [Concomitant]
     Dosage: UNK
     Route: 064
  9. SMZ/TMP DS 800-160 [Concomitant]
     Dosage: UNK
     Route: 064
  10. PRENATE GT [Concomitant]
     Dosage: UNK
     Route: 064

REACTIONS (3)
  - Maternal exposure during pregnancy [Unknown]
  - Talipes [Unknown]
  - Premature baby [Unknown]
